FAERS Safety Report 7676482-9 (Version None)
Quarter: 2011Q3

REPORT INFORMATION
  Report Type: 
  Country: None (occurrence: None)
  Receive Date: 20110805
  Receipt Date: 20110725
  Transmission Date: 20111222
  Serious: Yes (Other)
  Sender: FDA-Public Use
  Company Number: GB-ACCORD-010141

PATIENT

DRUGS (1)
  1. CLONAZEPAM [Suspect]
     Indication: PRODUCT USED FOR UNKNOWN INDICATION

REACTIONS (3)
  - DISORIENTATION [None]
  - EUPHORIC MOOD [None]
  - INTENTIONAL DRUG MISUSE [None]
